FAERS Safety Report 5644031-2 (Version None)
Quarter: 2008Q1

REPORT INFORMATION
  Report Type: 
  Country: None (occurrence: None)
  Receive Date: 20080131
  Receipt Date: 20071119
  Transmission Date: 20080703
  Serious: Yes (Hospitalization, Other)
  Sender: FDA-Public Use
  Company Number: 163-21880-07111224

PATIENT
  Age: 63 Year
  Sex: Female

DRUGS (2)
  1. REVLIMID [Suspect]
     Indication: GAMMOPATHY
     Dosage: 15 MG, 4 X A WEEK X 2 MONTHS, ORAL
     Route: 048
     Dates: start: 20060209
  2. WARFARIN SODIUM [Concomitant]

REACTIONS (5)
  - COUGH [None]
  - DIARRHOEA [None]
  - MUSCLE SPASMS [None]
  - NASAL CONGESTION [None]
  - PLATELET COUNT DECREASED [None]
